FAERS Safety Report 9237616 (Version 1)
Quarter: 2013Q2

REPORT INFORMATION
  Report Type: Spontaneous
  Country: FR (occurrence: FR)
  Receive Date: 20130418
  Receipt Date: 20130418
  Transmission Date: 20140414
  Serious: Yes (Life-Threatening, Other)
  Sender: FDA-Public Use
  Company Number: FR-009507513-1304FRA005050

PATIENT
  Age: 51 Year
  Sex: Female
  Weight: 89 kg

DRUGS (5)
  1. ISENTRESS [Suspect]
     Indication: HIV INFECTION
     Dosage: 2 DF, BID
     Route: 048
     Dates: start: 20130207, end: 20130317
  2. KIVEXA [Suspect]
     Indication: HIV INFECTION
     Dosage: 1 DF, QD
     Route: 048
     Dates: start: 20130207, end: 20130317
  3. RIMIFON [Suspect]
     Dosage: 2 DF, QD
     Route: 048
     Dates: start: 20130110, end: 20130318
  4. RIFADIN [Suspect]
     Dosage: 2 DF, QD
     Route: 048
     Dates: start: 20130110, end: 20130318
  5. DEXAMBUTOL [Suspect]
     Dosage: 3 DF, QD
     Route: 048
     Dates: start: 20130110, end: 20130318

REACTIONS (8)
  - Drug reaction with eosinophilia and systemic symptoms [Not Recovered/Not Resolved]
  - Rash [Not Recovered/Not Resolved]
  - Lymphadenopathy [Not Recovered/Not Resolved]
  - Pyrexia [Not Recovered/Not Resolved]
  - Hepatocellular injury [Not Recovered/Not Resolved]
  - Face oedema [Not Recovered/Not Resolved]
  - Eosinophilia [Not Recovered/Not Resolved]
  - Agranulocytosis [Recovering/Resolving]
